FAERS Safety Report 5612985-6 (Version None)
Quarter: 2008Q1

REPORT INFORMATION
  Report Type: 
  Country: None (occurrence: None)
  Receive Date: 20080204
  Receipt Date: 20080122
  Transmission Date: 20080703
  Serious: Yes (Other)
  Sender: FDA-Public Use
  Company Number: IT-RANBAXY-2008RR-12788

PATIENT

DRUGS (3)
  1. ISOTRETINOIN [Suspect]
     Dosage: 30 MG, QD
     Route: 048
  2. WARFARIN SODIUM [Suspect]
     Route: 048
  3. WARFARIN SODIUM [Suspect]
     Dosage: 3.75 MG, QD
     Route: 048

REACTIONS (2)
  - DRUG EFFECT DECREASED [None]
  - DRUG INTERACTION [None]
